FAERS Safety Report 9098074 (Version 4)
Quarter: 2013Q2

REPORT INFORMATION
  Report Type: Spontaneous
  Country: US (occurrence: US)
  Receive Date: 20130212
  Receipt Date: 20130409
  Transmission Date: 20140414
  Serious: Yes (Hospitalization, Other)
  Sender: FDA-Public Use
  Company Number: US-RB-049484-13

PATIENT
  Age: 59 Year
  Sex: Male
  Weight: 244 kg

DRUGS (3)
  1. MUCINEX DM MAXIMUM STRENGTH (GUAIFENESIN) [Suspect]
     Indication: COUGH
     Dosage: PATIENT TOOK PRODUCT ON 05-JAN-2013 AND 06-JAN-2013 1 TABLET DAILY.
     Route: 048
     Dates: start: 20130105
  2. MUCINEX DM MAXIMUM STRENGTH (DEXTROMETHORPHAN HYDROBROMIDE) [Suspect]
  3. ALKA SELTZER PLUS [Suspect]
     Indication: PRODUCT USED FOR UNKNOWN INDICATION

REACTIONS (12)
  - Idiopathic thrombocytopenic purpura [Recovering/Resolving]
  - Platelet count decreased [Recovering/Resolving]
  - Haemorrhage [Unknown]
  - Choking [Unknown]
  - Headache [Unknown]
  - Tongue blistering [Unknown]
  - Unevaluable event [Unknown]
  - Hypertension [Unknown]
  - Gingival bleeding [Unknown]
  - Petechiae [Unknown]
  - Varicose vein [Unknown]
  - Oral disorder [Unknown]
